FAERS Safety Report 23111931 (Version 2)
Quarter: 2024Q3

REPORT INFORMATION
  Report Type: Report from Study
  Country: KR (occurrence: KR)
  Receive Date: 20231026
  Receipt Date: 20240904
  Transmission Date: 20241016
  Serious: Yes (Other)
  Sender: BRISTOL MYERS SQUIBB
  Company Number: KR-BRISTOL-MYERS SQUIBB COMPANY-2023-152217

PATIENT
  Age: 68 Year
  Sex: Female
  Weight: 54 kg

DRUGS (43)
  1. POMALYST [Suspect]
     Active Substance: POMALIDOMIDE
     Indication: Plasma cell myeloma refractory
     Dates: start: 20181031, end: 20181215
  2. POMALYST [Suspect]
     Active Substance: POMALIDOMIDE
     Dates: start: 20190107, end: 20190127
  3. POMALYST [Suspect]
     Active Substance: POMALIDOMIDE
     Dosage: 2 MILLIGRAM
     Route: 048
     Dates: start: 20190211, end: 20190303
  4. POMALYST [Suspect]
     Active Substance: POMALIDOMIDE
     Dosage: 2 MILLIGRAM
     Route: 048
     Dates: start: 20190408, end: 20190428
  5. POMALYST [Suspect]
     Active Substance: POMALIDOMIDE
     Dosage: 2 MILLIGRAM
     Route: 048
     Dates: start: 20190520
  6. DEXAMETHASONE [Concomitant]
     Active Substance: DEXAMETHASONE
     Indication: Product used for unknown indication
     Dosage: 40 MILLIGRAM
  7. DEXAMETHASONE [Concomitant]
     Active Substance: DEXAMETHASONE
     Dosage: 160 MILLIGRAM
  8. DEXAMETHASONE [Concomitant]
     Active Substance: DEXAMETHASONE
     Dosage: 20 MILLIGRAM
  9. DEXAMETHASONE [Concomitant]
     Active Substance: DEXAMETHASONE
     Dosage: 80 MILLIGRAM
  10. DEXAMETHASONE [Concomitant]
     Active Substance: DEXAMETHASONE
     Dates: start: 20190107, end: 20190127
  11. DEXAMETHASONE [Concomitant]
     Active Substance: DEXAMETHASONE
     Dates: start: 20190211, end: 20190303
  12. DEXAMETHASONE [Concomitant]
     Active Substance: DEXAMETHASONE
     Dates: start: 20181031, end: 20181215
  13. AMLODIPINE [Concomitant]
     Active Substance: AMLODIPINE BESYLATE
     Indication: Hypertension
     Dosage: DAILY DOSE : 1 TABLET?UNIT DOSE : 1 TABLET?1 TABLET
     Route: 048
     Dates: start: 20150817
  14. VALSARTAN [Concomitant]
     Active Substance: VALSARTAN
     Indication: Hypertension
     Dosage: DAILY DOSE : 1 TABLET?UNIT DOSE : 1 TABLET?1 TABLET
     Route: 048
     Dates: start: 20150817
  15. WARFARIN [Concomitant]
     Active Substance: WARFARIN
     Indication: Pulmonary embolism
     Dosage: 2.5 MILLIGRAM
     Route: 048
     Dates: start: 20141202
  16. EZETIMIBE [Concomitant]
     Active Substance: EZETIMIBE
     Indication: Prophylaxis
     Dosage: DAILY DOSE : 1 TABLET?UNIT DOSE : 1 TABLET?1 TABLET
     Route: 048
     Dates: start: 20160719
  17. ROSUVASTATIN [Concomitant]
     Active Substance: ROSUVASTATIN\ROSUVASTATIN CALCIUM
     Indication: Prophylaxis
     Dosage: DAILY DOSE : 1 TABLET?UNIT DOSE : 1 TABLET?1 TABLET
     Route: 048
     Dates: start: 20160719
  18. VITAMIN B COMPLEX [Concomitant]
     Active Substance: CYANOCOBALAMIN\DEXPANTHENOL\NIACINAMIDE\PYRIDOXINE HYDROCHLORIDE\RIBOFLAVIN 5^-PHOSPHATE SODIUM\THIA
     Indication: Vitamin supplementation
     Dosage: DAILY DOSE : 1 TABLET?UNIT DOSE : 1 TABLET?1 TABLET
     Route: 048
     Dates: start: 20120804
  19. FOLIC ACID [Concomitant]
     Active Substance: FOLIC ACID
     Indication: Anaemia prophylaxis
     Dosage: DAILY DOSE : 1 TABLET?UNIT DOSE : 1 TABLET?1 TABLET
     Route: 048
     Dates: start: 20120804
  20. CALCIUM [Concomitant]
     Active Substance: CALCIUM
     Indication: Mineral supplementation
     Dosage: DAILY DOSE : 1 TABLET?UNIT DOSE : 1 TABLET?1 TABLET
     Route: 048
     Dates: start: 20121205
  21. ERGOCALCIFEROL [Concomitant]
     Active Substance: ERGOCALCIFEROL
     Indication: Mineral supplementation
     Dosage: DAILY DOSE : 1 TABLET?UNIT DOSE : 1 TABLET?1 TABLET
     Route: 048
     Dates: start: 20121205
  22. URSODIOL [Concomitant]
     Active Substance: URSODIOL
     Indication: Aspartate aminotransferase increased
     Dosage: DAILY DOSE : 3 TABLET?TOTAL DOSE : 15 TABLET?UNIT DOSE : 1 TABLET?3 TABLET
     Route: 048
     Dates: start: 20181004, end: 20181009
  23. TRIMETHOPRIM [Concomitant]
     Active Substance: TRIMETHOPRIM
     Indication: Infection prophylaxis
     Dosage: DAILY DOSE : 2 TABLET?UNIT DOSE : 1 TABLET?2 TABLET
     Route: 048
     Dates: start: 20181003
  24. POTASSIUM PHOSPHATE, MONOBASIC [Concomitant]
     Active Substance: POTASSIUM PHOSPHATE, MONOBASIC
     Indication: Mineral supplementation
     Dosage: FREQUENCY TEXT: NOT PROVIDED
     Route: 042
     Dates: start: 20181004, end: 20181004
  25. Acyclovir Hyundai [Concomitant]
     Indication: Antiviral prophylaxis
     Dates: start: 20181005, end: 20181005
  26. CIPROFLOXACIN [Concomitant]
     Active Substance: CIPROFLOXACIN
     Indication: Rhinorrhoea
     Dosage: DAILY DOSE : 2 TABLET?TOTAL DOSE : 14 TABLET?UNIT DOSE : 1 TABLET?2 TABLET
     Route: 048
     Dates: start: 20181008, end: 20181015
  27. DARBEPOETIN ALFA [Concomitant]
     Active Substance: DARBEPOETIN ALFA
     Indication: Myelosuppression
     Dosage: 1 SYRINGE
     Route: 058
     Dates: start: 20181011, end: 20181011
  28. DARBEPOETIN ALFA [Concomitant]
     Active Substance: DARBEPOETIN ALFA
     Dosage: 1 SYRINGE
     Route: 058
     Dates: start: 20181129, end: 20181129
  29. DARBEPOETIN ALFA [Concomitant]
     Active Substance: DARBEPOETIN ALFA
     Dosage: 1 SYRINGE
     Route: 058
     Dates: start: 20181227, end: 20181227
  30. DARBEPOETIN ALFA [Concomitant]
     Active Substance: DARBEPOETIN ALFA
     Dosage: 1 SYRINGE
     Route: 058
     Dates: start: 20190124, end: 20190124
  31. DARBEPOETIN ALFA [Concomitant]
     Active Substance: DARBEPOETIN ALFA
     Dosage: 1 SYRINGE
     Route: 058
     Dates: start: 20190221, end: 20190221
  32. DARBEPOETIN ALFA [Concomitant]
     Active Substance: DARBEPOETIN ALFA
     Dosage: 1 SYRINGE
     Route: 058
     Dates: start: 20190321, end: 20190321
  33. EBASTINE [Concomitant]
     Active Substance: EBASTINE
     Indication: Rhinorrhoea
     Route: 048
     Dates: start: 20181011, end: 20181014
  34. PSEUDOEPHEDRINE [Concomitant]
     Active Substance: PSEUDOEPHEDRINE
     Indication: Rhinorrhoea
     Route: 048
     Dates: start: 20181011, end: 20181014
  35. CEFDITOREN PIVOXIL [Concomitant]
     Active Substance: CEFDITOREN PIVOXIL
     Indication: Rhinorrhoea
     Route: 048
     Dates: start: 20181011, end: 20181014
  36. Pamidronate + Dextrose [Concomitant]
     Indication: Osteomalacia
     Dosage: FREQUENCY TEXT: NOT PROVIDED?60 MILLIGRAM+200 MILLILITER
     Dates: start: 20181129, end: 20181129
  37. Pamidronate + Dextrose [Concomitant]
     Dosage: FREQUENCY TEXT: NOT PROVIDED?60 MILLIGRAM+200 MILLILITER
     Dates: start: 20181227, end: 20181227
  38. Pamidronate + Dextrose [Concomitant]
     Dosage: FREQUENCY TEXT: NOT PROVIDED?60 MILLIGRAM+200 MILLILITER
     Dates: start: 20190124, end: 20190124
  39. Pamidronate + Dextrose [Concomitant]
     Dosage: FREQUENCY TEXT: NOT PROVIDED?60 MILLIGRAM+200 MILLILITER
     Dates: start: 20190221, end: 20190221
  40. Pamidronate + Dextrose [Concomitant]
     Dosage: FREQUENCY TEXT: NOT PROVIDED?60 MILLIGRAM+200 MILLILITER
     Dates: start: 20190321, end: 20190321
  41. CYCLOPHOSPHAMIDE [Concomitant]
     Active Substance: CYCLOPHOSPHAMIDE
     Indication: Plasma cell myeloma
     Route: 048
     Dates: start: 20181031, end: 20181116
  42. CYCLOPHOSPHAMIDE [Concomitant]
     Active Substance: CYCLOPHOSPHAMIDE
     Route: 048
     Dates: start: 20190408, end: 20190422
  43. SULFAMETHOXAZOLE [Concomitant]
     Active Substance: SULFAMETHOXAZOLE
     Indication: Infection prophylaxis
     Dosage: DAILY DOSE: 2 TABLETS?UNIT DOSE: 1 TABLET
     Route: 048
     Dates: start: 20181003

REACTIONS (1)
  - Myelosuppression [Recovered/Resolved]

NARRATIVE: CASE EVENT DATE: 20190401
